FAERS Safety Report 19187214 (Version 2)
Quarter: 2021Q2

REPORT INFORMATION
  Report Type: Report from Study
  Country: None (occurrence: US)
  Receive Date: 20210428
  Receipt Date: 20210504
  Transmission Date: 20210717
  Serious: Yes (Other)
  Sender: FDA-Public Use
  Company Number: US-ABBVIE-21K-163-3873950-00

PATIENT
  Age: 72 Year
  Sex: Female
  Weight: 77.18 kg

DRUGS (3)
  1. COVID?19 VACCINE NOS. [Concomitant]
     Active Substance: COVID-19 VACCINE NOS
     Dosage: MANUFACTURED: PFIZER
     Route: 030
     Dates: start: 202103, end: 202103
  2. HUMIRA [Suspect]
     Active Substance: ADALIMUMAB
     Indication: ANKYLOSING SPONDYLITIS
     Route: 058
     Dates: start: 2016
  3. COVID?19 VACCINE NOS. [Concomitant]
     Active Substance: COVID-19 VACCINE NOS
     Indication: COVID-19 IMMUNISATION
     Dosage: MANUFACTURED: PFIZER
     Route: 030
     Dates: start: 202103, end: 202103

REACTIONS (8)
  - Nephrolithiasis [Recovered/Resolved]
  - Procedural pain [Recovering/Resolving]
  - Throat irritation [Unknown]
  - Gastritis [Recovering/Resolving]
  - Gastric ulcer [Recovering/Resolving]
  - Postoperative wound complication [Recovering/Resolving]
  - Inguinal hernia [Recovering/Resolving]
  - Oropharyngeal pain [Recovered/Resolved]

NARRATIVE: CASE EVENT DATE: 202010
